FAERS Safety Report 11248516 (Version 1)
Quarter: 2015Q3

REPORT INFORMATION
  Report Type: Spontaneous
  Country: US (occurrence: US)
  Receive Date: 20150708
  Receipt Date: 20150708
  Transmission Date: 20151125
  Serious: No
  Sender: FDA-Public Use
  Company Number: US-ELI_LILLY_AND_COMPANY-US200912003850

PATIENT
  Age: 40 Year
  Sex: Male

DRUGS (1)
  1. PROZAC [Suspect]
     Active Substance: FLUOXETINE HYDROCHLORIDE
     Indication: MAJOR DEPRESSION
     Dosage: UNK, UNKNOWN
     Route: 065

REACTIONS (5)
  - Loss of libido [Unknown]
  - Gastrointestinal disorder [Unknown]
  - Dry mouth [Unknown]
  - Vision blurred [Unknown]
  - Hyperhidrosis [Unknown]
